FAERS Safety Report 5071853-1 (Version None)
Quarter: 2006Q3

REPORT INFORMATION
  Report Type: 
  Country: None (occurrence: None)
  Receive Date: 20060801
  Receipt Date: 20060718
  Transmission Date: 20061208
  Serious: Yes (Other)
  Sender: FDA-Public Use
  Company Number: US200607003091

PATIENT
  Age: 69 Year
  Sex: Female

DRUGS (8)
  1. XIGRIS [Suspect]
     Indication: SEPSIS
     Dosage: INTRAVENOUS
     Route: 042
     Dates: start: 20060717
  2. NOREPINEPHRINE BITARTRATE [Concomitant]
  3. PROTONIX [Concomitant]
  4. ZOSYN [Concomitant]
  5. MORPHINE [Concomitant]
  6. ATIVAN [Concomitant]
  7. PRIMAXIN [Concomitant]
  8. INSULIN [Concomitant]

REACTIONS (1)
  - INTERNATIONAL NORMALISED RATIO INCREASED [None]
